FAERS Safety Report 10038588 (Version 1)
Quarter: 2014Q1

REPORT INFORMATION
  Report Type: Spontaneous
  Country: US (occurrence: US)
  Receive Date: 20140326
  Receipt Date: 20140326
  Transmission Date: 20141002
  Serious: Yes (Death)
  Sender: FDA-Public Use
  Company Number: US-PFIZER INC-2014082080

PATIENT
  Age: 68 Year
  Sex: Female

DRUGS (4)
  1. VORICONAZOLE [Suspect]
     Indication: PROPHYLAXIS
     Dosage: UNK
  2. VORICONAZOLE [Suspect]
     Indication: FUNGAL INFECTION
  3. LEVOFLOXACIN [Concomitant]
     Indication: PYREXIA
     Dosage: UNK
  4. LEVOFLOXACIN [Concomitant]
     Indication: DYSPNOEA

REACTIONS (1)
  - Zygomycosis [Fatal]
